FAERS Safety Report 4617987-4 (Version None)
Quarter: 2005Q1

REPORT INFORMATION
  Report Type: 
  Country: None (occurrence: None)
  Receive Date: 20050322
  Receipt Date: 20050317
  Transmission Date: 20050727
  Serious: No
  Sender: FDA-Public Use
  Company Number: 2005AP01753

PATIENT
  Age: 23 Year
  Sex: Female

DRUGS (7)
  1. SEROQUEL [Suspect]
     Dosage: 50 MG DAILY PO
     Route: 048
     Dates: start: 20041201, end: 20050124
  2. DEPROMEL [Concomitant]
  3. LANDSEN [Concomitant]
  4. TRYPTANOL [Concomitant]
  5. TELESMIN [Concomitant]
  6. BIOFERMIN [Concomitant]
  7. AZUCURENIN S [Concomitant]

REACTIONS (1)
  - PUPILLARY REFLEX IMPAIRED [None]
